FAERS Safety Report 25361443 (Version 1)
Quarter: 2025Q2

REPORT INFORMATION
  Report Type: Spontaneous
  Country: FR (occurrence: FR)
  Receive Date: 20250527
  Receipt Date: 20250527
  Transmission Date: 20250716
  Serious: Yes (Other)
  Sender: Haleon PLC
  Company Number: None

PATIENT
  Age: 16 Year
  Sex: Female
  Weight: 50 kg

DRUGS (3)
  1. IBUPROFEN [Suspect]
     Active Substance: IBUPROFEN
     Indication: Pain
     Dosage: 400 MG MORNING AND EVENING
     Route: 048
     Dates: start: 20250426, end: 20250501
  2. ACETAMINOPHEN [Suspect]
     Active Substance: ACETAMINOPHEN
     Indication: Pain
     Dosage: 500 MG MORNING AND EVENING
     Route: 048
     Dates: start: 20250427, end: 20250501
  3. CODEINE [Suspect]
     Active Substance: CODEINE
     Indication: Pain
     Dosage: 30 MG MORNING AND EVENING
     Route: 048
     Dates: start: 20250427, end: 20250501

REACTIONS (1)
  - Hypertransaminasaemia [Recovering/Resolving]

NARRATIVE: CASE EVENT DATE: 20250501
